FAERS Safety Report 23744354 (Version 3)
Quarter: 2024Q3

REPORT INFORMATION
  Report Type: Spontaneous
  Country: JP (occurrence: JP)
  Receive Date: 20240415
  Receipt Date: 20240913
  Transmission Date: 20241016
  Serious: Yes (Life-Threatening)
  Sender: TAIHO ONCOLOGY INC
  Company Number: JP-TAIHOP-2024-003635

PATIENT
  Age: 74 Year
  Sex: Male
  Weight: 68.1 kg

DRUGS (4)
  1. LONSURF [Suspect]
     Active Substance: TIPIRACIL HYDROCHLORIDE\TRIFLURIDINE
     Indication: Rectal cancer stage III
     Dosage: CYCLE 1
     Route: 048
     Dates: start: 20160606
  2. LONSURF [Suspect]
     Active Substance: TIPIRACIL HYDROCHLORIDE\TRIFLURIDINE
     Dosage: CYCLE UNKNOWN
     Route: 048
     Dates: end: 20230828
  3. RABEPRAZOLE [Suspect]
     Active Substance: RABEPRAZOLE
     Indication: Gastritis
     Dosage: START DATE: 22/JAN/2024
     Route: 048
     Dates: end: 20240608
  4. CARVEDILOL [Concomitant]
     Active Substance: CARVEDILOL
     Indication: Cardiac failure chronic
     Dosage: EVERYDAY
     Route: 048
     Dates: start: 20140619, end: 20240608

REACTIONS (4)
  - Myelodysplastic syndrome [Not Recovered/Not Resolved]
  - Hypertension [Recovered/Resolved]
  - Underdose [Unknown]
  - Inappropriate schedule of product administration [Unknown]

NARRATIVE: CASE EVENT DATE: 20230828
